FAERS Safety Report 6772797-7 (Version None)
Quarter: 2010Q2

REPORT INFORMATION
  Report Type: 
  Country: None (occurrence: None)
  Receive Date: 20100616
  Receipt Date: 20100608
  Transmission Date: 20101027
  Serious: Yes (Hospitalization)
  Sender: FDA-Public Use
  Company Number: GXKR2010JP06318

PATIENT
  Age: 74 Year
  Sex: Female

DRUGS (4)
  1. ACETYLSALICYLIC ACID SRT [Suspect]
     Dosage: 100 MG, UNK
  2. HEPARIN (NGX) [Suspect]
     Indication: ANGINA UNSTABLE
     Dosage: UNK
  3. GLYCERYL TRINITRATE [Concomitant]
     Indication: ANGINA UNSTABLE
  4. BETA BLOCKING AGENTS [Concomitant]
     Route: 048

REACTIONS (6)
  - ABDOMINAL PAIN LOWER [None]
  - HAEMATOMA [None]
  - HAEMOGLOBIN DECREASED [None]
  - HYPOTENSION [None]
  - PAINFUL DEFAECATION [None]
  - THERAPEUTIC EMBOLISATION [None]
